FAERS Safety Report 7962245-3 (Version None)
Quarter: 2011Q4

REPORT INFORMATION
  Report Type: 
  Country: None (occurrence: None)
  Receive Date: 20111207
  Receipt Date: 20111201
  Transmission Date: 20120403
  Serious: Yes (Hospitalization)
  Sender: FDA-Public Use
  Company Number: PHEH2011US02589

PATIENT
  Sex: Female

DRUGS (12)
  1. NORVASC [Concomitant]
     Dosage: 5 MG DAILY
  2. ZETIA [Concomitant]
     Dosage: 10 MG DAILY
  3. DITROPAN XL [Concomitant]
     Dosage: 10 MG DAILY
  4. LISINOPRIL [Concomitant]
     Dosage: 30 MG DAILY
  5. LOVAZA [Concomitant]
     Dosage: 1 DF DAILY
  6. TASIGNA [Suspect]
     Indication: CHRONIC MYELOID LEUKAEMIA
     Dosage: 300 MG, BID
     Route: 048
     Dates: start: 20110720
  7. FOSAMAX [Concomitant]
     Dosage: 5 MG DALIY
  8. SIMVASTATIN [Concomitant]
     Dosage: 40 MG DAILY
  9. CALCIUM AND ERGOCALCIFEROL [Concomitant]
     Dosage: 1 DF DAILY
  10. ASPIRIN [Concomitant]
     Dosage: 81 MG DAILY
  11. MULTI-VITAMINS [Concomitant]
     Dosage: 1 DF DAILY
  12. GLUCOSAMINE [Concomitant]
     Dosage: 1 DF DAILY

REACTIONS (4)
  - VOMITING [None]
  - PANCREATITIS [None]
  - NAUSEA [None]
  - ABDOMINAL PAIN [None]
